FAERS Safety Report 8255947-5 (Version None)
Quarter: 2012Q1

REPORT INFORMATION
  Report Type: 
  Country: None (occurrence: None)
  Receive Date: 20120330
  Receipt Date: 20120309
  Transmission Date: 20120608
  Serious: Yes (Death)
  Sender: FDA-Public Use
  Company Number: EU-2012-10092

PATIENT
  Sex: Male

DRUGS (1)
  1. SAMSCA [Suspect]
     Dosage: 15 MG MILLIGRAM(S), SINGLE

REACTIONS (2)
  - NEOPLASM PROGRESSION [None]
  - HEPATIC NEOPLASM MALIGNANT [None]
